FAERS Safety Report 14169791 (Version 1)
Quarter: 2017Q4

REPORT INFORMATION
  Report Type: Spontaneous
  Country: US (occurrence: US)
  Receive Date: 20171108
  Receipt Date: 20171108
  Transmission Date: 20180321
  Serious: No
  Sender: FDA-Public Use
  Company Number: US-GLAXOSMITHKLINE-US2017169269

PATIENT
  Sex: Female

DRUGS (1)
  1. ABREVA [Suspect]
     Active Substance: DOCOSANOL
     Indication: APHTHOUS ULCER
     Dosage: UNK
     Route: 061
     Dates: start: 20171027, end: 20171103

REACTIONS (3)
  - Incorrect drug administration duration [Unknown]
  - Product use in unapproved indication [Unknown]
  - Drug administration error [Unknown]
